FAERS Safety Report 24141571 (Version 1)
Quarter: 2024Q3

REPORT INFORMATION
  Report Type: Spontaneous
  Country: US (occurrence: None)
  Receive Date: 20240725
  Receipt Date: 20240725
  Transmission Date: 20241017
  Serious: Yes (Hospitalization)
  Sender: Public
  Company Number: None

PATIENT
  Age: 58 Year
  Sex: Male
  Weight: 90.4 kg

DRUGS (2)
  1. GADOBENATE DIMEGLUMINE [Suspect]
     Active Substance: GADOBENATE DIMEGLUMINE
     Route: 042
     Dates: start: 20240715, end: 20240715
  2. GADOBENATE DIMEGLUMINE [Concomitant]
     Active Substance: GADOBENATE DIMEGLUMINE
     Dates: start: 20240715, end: 20240715

REACTIONS (2)
  - Seizure [None]
  - Contrast media reaction [None]

NARRATIVE: CASE EVENT DATE: 20240715
